FAERS Safety Report 10207000 (Version 2)
Quarter: 2014Q2

REPORT INFORMATION
  Report Type: Spontaneous
  Country: US (occurrence: US)
  Receive Date: 20140530
  Receipt Date: 20140530
  Transmission Date: 20141212
  Serious: No
  Sender: FDA-Public Use
  Company Number: US-MYLANLABS-2013S1014649

PATIENT
  Sex: Male

DRUGS (3)
  1. GALANTAMINE TABLETS, USP [Suspect]
     Indication: DEMENTIA
     Route: 048
     Dates: start: 201201, end: 201302
  2. HYPERTENSION MEDICATION [Concomitant]
  3. ALLOPURINOL [Concomitant]
     Indication: GOUT

REACTIONS (1)
  - Fatigue [Not Recovered/Not Resolved]
